FAERS Safety Report 12140738 (Version 1)
Quarter: 2016Q1

REPORT INFORMATION
  Report Type: Spontaneous
  Country: US (occurrence: None)
  Receive Date: 20160302
  Receipt Date: 20160302
  Transmission Date: 20160526
  Serious: Yes (Hospitalization)
  Sender: FDA-Public Use
  Company Number: None

PATIENT
  Age: 49 Year
  Sex: Female
  Weight: 73.5 kg

DRUGS (3)
  1. OXALIPLATIN. [Suspect]
     Active Substance: OXALIPLATIN
     Indication: ADENOCARCINOMA PANCREAS
     Dosage: 2X MONTH INTRAVENOUS
     Route: 042
     Dates: start: 20160126
  2. 5-FU [Suspect]
     Active Substance: FLUOROURACIL
     Dosage: 2X MONTH CONTINUOUS INTRAVENOUS INFUSION
     Route: 042
  3. IRINOTECAN [Suspect]
     Active Substance: IRINOTECAN
     Indication: ADENOCARCINOMA PANCREAS
     Dosage: 2X MONTH INTRAVENOUS
     Route: 042
     Dates: start: 20160126

REACTIONS (5)
  - Nausea [None]
  - Diarrhoea [None]
  - Dyspnoea [None]
  - Productive cough [None]
  - Vomiting [None]

NARRATIVE: CASE EVENT DATE: 20160229
